FAERS Safety Report 7968464-4 (Version None)
Quarter: 2011Q4

REPORT INFORMATION
  Report Type: 
  Country: None (occurrence: None)
  Receive Date: 20111209
  Receipt Date: 20111206
  Transmission Date: 20120403
  Serious: Yes (Death, Other)
  Sender: FDA-Public Use
  Company Number: US-ELI_LILLY_AND_COMPANY-US201112001771

PATIENT
  Sex: Male

DRUGS (1)
  1. GEMZAR [Suspect]
     Dosage: UNK
     Route: 042
     Dates: start: 20101112, end: 20101112

REACTIONS (3)
  - HOSPICE CARE [None]
  - DEATH [None]
  - WEIGHT DECREASED [None]
